FAERS Safety Report 12098955 (Version 2)
Quarter: 2016Q1

REPORT INFORMATION
  Report Type: Spontaneous
  Country: US (occurrence: US)
  Receive Date: 20160222
  Receipt Date: 20160330
  Transmission Date: 20160526
  Serious: Yes (Hospitalization, Other)
  Sender: FDA-Public Use
  Company Number: US-009507513-1602USA008655

PATIENT
  Sex: Female

DRUGS (1)
  1. NOXAFIL [Suspect]
     Active Substance: POSACONAZOLE
     Dosage: 300 MG (3 TABLETS), QD
     Route: 048

REACTIONS (3)
  - Febrile infection [Unknown]
  - White blood cell count decreased [Unknown]
  - Leukaemia [Unknown]
